FAERS Safety Report 25640867 (Version 1)
Quarter: 2025Q3

REPORT INFORMATION
  Report Type: Spontaneous
  Country: EU (occurrence: EU)
  Receive Date: 20250804
  Receipt Date: 20250804
  Transmission Date: 20251021
  Serious: Yes (Hospitalization, Other)
  Sender: GLAXOSMITHKLINE
  Company Number: EU-GSK-IE2024GSK104123

PATIENT
  Age: 37 Year
  Sex: Female

DRUGS (2)
  1. LAMOTRIGINE [Suspect]
     Active Substance: LAMOTRIGINE
     Indication: Product used for unknown indication
  2. CLOMIPRAMINE [Suspect]
     Active Substance: CLOMIPRAMINE
     Indication: Product used for unknown indication

REACTIONS (12)
  - Toxicity to various agents [Recovering/Resolving]
  - Intentional overdose [Recovering/Resolving]
  - Respiratory acidosis [Recovering/Resolving]
  - Lactic acidosis [Recovering/Resolving]
  - Seizure [Recovering/Resolving]
  - Tachycardia [Unknown]
  - Clonus [Recovering/Resolving]
  - Myoclonus [Recovering/Resolving]
  - Mydriasis [Recovering/Resolving]
  - Depressed level of consciousness [Recovering/Resolving]
  - Psychotic symptom [Recovering/Resolving]
  - General physical health deterioration [Recovering/Resolving]
